FAERS Safety Report 16120294 (Version 2)
Quarter: 2019Q2

REPORT INFORMATION
  Report Type: Spontaneous
  Country: JP (occurrence: JP)
  Receive Date: 20190326
  Receipt Date: 20190409
  Transmission Date: 20190711
  Serious: No
  Sender: FDA-Public Use
  Company Number: JP-SEATTLE GENETICS-2019SGN00857

PATIENT
  Age: 66 Year
  Sex: Male
  Weight: 55.4 kg

DRUGS (7)
  1. ADCETRIS [Suspect]
     Active Substance: BRENTUXIMAB VEDOTIN
     Indication: HODGKIN^S DISEASE
     Dosage: 50 MILLIGRAM, Q2WEEKS
     Route: 041
     Dates: start: 20190121, end: 20190121
  2. ADRIACIN [Suspect]
     Active Substance: DOXORUBICIN HYDROCHLORIDE
     Dosage: 50 MILLIGRAM
     Route: 041
     Dates: start: 20190219, end: 20190219
  3. ADRIACIN [Suspect]
     Active Substance: DOXORUBICIN HYDROCHLORIDE
     Dosage: UNK
     Route: 041
     Dates: start: 20190305
  4. ADRIACIN [Suspect]
     Active Substance: DOXORUBICIN HYDROCHLORIDE
     Indication: HODGKIN^S DISEASE
     Dosage: 40 MILLIGRAM
     Route: 041
     Dates: start: 20190121, end: 20190205
  5. EXAL [Concomitant]
     Indication: HODGKIN^S DISEASE
     Dosage: 8 MILLIGRAM
     Route: 041
     Dates: start: 20190121
  6. ADCETRIS [Suspect]
     Active Substance: BRENTUXIMAB VEDOTIN
     Dosage: 70 MILLIGRAM, Q2WEEKS
     Route: 041
     Dates: start: 20190205
  7. DACARBAZINE. [Concomitant]
     Active Substance: DACARBAZINE
     Indication: HODGKIN^S DISEASE
     Dosage: 500 MILLIGRAM
     Route: 041
     Dates: start: 20190121

REACTIONS (1)
  - Pancytopenia [Recovering/Resolving]

NARRATIVE: CASE EVENT DATE: 20190222
